FAERS Safety Report 17657269 (Version 1)
Quarter: 2020Q2

REPORT INFORMATION
  Report Type: Spontaneous
  Country: US (occurrence: US)
  Receive Date: 20200410
  Receipt Date: 20200410
  Transmission Date: 20200713
  Serious: Yes (Other)
  Sender: FDA-Public Use
  Company Number: US-JNJFOC-20200403599

PATIENT
  Age: 72 Year
  Sex: Female
  Weight: 80.81 kg

DRUGS (3)
  1. XARELTO [Suspect]
     Active Substance: RIVAROXABAN
     Dosage: PRESCRIPTION NUMBER: 6314136N
     Route: 048
     Dates: start: 2018
  2. XARELTO [Suspect]
     Active Substance: RIVAROXABAN
     Indication: DEEP VEIN THROMBOSIS
     Route: 048
     Dates: start: 2016, end: 2018
  3. /00587301/ [Concomitant]
     Indication: HERPES VIRUS INFECTION
     Dosage: 400 MG - 800 MG/ PILL/ 400 MG/ 1 EVERY OTHER DAY; 2 IN BETWEEN DAYS/ ORAL
     Route: 048

REACTIONS (3)
  - Cataract operation [Unknown]
  - Eye haemorrhage [Not Recovered/Not Resolved]
  - Body height decreased [Unknown]

NARRATIVE: CASE EVENT DATE: 20200226
